FAERS Safety Report 6540573-6 (Version None)
Quarter: 2010Q1

REPORT INFORMATION
  Report Type: 
  Country: None (occurrence: None)
  Receive Date: 20100113
  Receipt Date: 20100107
  Transmission Date: 20100710
  Serious: Yes (Life-Threatening, Hospitalization, Other)
  Sender: FDA-Public Use
  Company Number: 2009SP039799

PATIENT
  Age: 53 Year
  Sex: Female

DRUGS (1)
  1. TEMODAL [Suspect]
     Indication: GLIOBLASTOMA MULTIFORME
     Dosage: 75 MG/M2
     Dates: start: 20090117, end: 20090401

REACTIONS (5)
  - ANAEMIA [None]
  - DIABETES MELLITUS [None]
  - DISEASE PROGRESSION [None]
  - THROMBOCYTOPENIA [None]
  - URINARY TRACT INFECTION [None]
